FAERS Safety Report 8915076 (Version 2)
Quarter: 2012Q4

REPORT INFORMATION
  Report Type: 
  Country: US (occurrence: US)
  Receive Date: 20121119
  Receipt Date: 20121130
  Transmission Date: 20130627
  Serious: No
  Sender: FDA-Public Use
  Company Number: PHEH2012US022529

PATIENT
  Sex: Male

DRUGS (2)
  1. DIOVAN HCT [Suspect]
     Indication: HYPERTENSION
     Dosage: 1 DF(80/12.5 mg), daily
  2. DIOVAN [Suspect]

REACTIONS (4)
  - Memory impairment [Unknown]
  - Arthritis [Not Recovered/Not Resolved]
  - Dizziness [Unknown]
  - Blood pressure inadequately controlled [Unknown]
